FAERS Safety Report 20237267 (Version 1)
Quarter: 2021Q4

REPORT INFORMATION
  Report Type: Spontaneous
  Country: US (occurrence: None)
  Receive Date: 20211227
  Receipt Date: 20211227
  Transmission Date: 20220303
  Serious: Yes (Disabling, Other)
  Sender: FDA-Public Use
  Company Number: None

PATIENT
  Age: 53 Year
  Sex: Female
  Weight: 70.2 kg

DRUGS (1)
  1. OCREVUS [Suspect]
     Active Substance: OCRELIZUMAB
     Indication: Multiple sclerosis
     Dosage: OTHER FREQUENCY : 1 INFUSION EVERY S;?
     Route: 042
     Dates: start: 20191001, end: 20210401

REACTIONS (6)
  - Peroneal nerve palsy [None]
  - Asthenia [None]
  - Clumsiness [None]
  - Skin lesion [None]
  - T-lymphocyte count decreased [None]
  - Gait disturbance [None]

NARRATIVE: CASE EVENT DATE: 20191008
